FAERS Safety Report 6700316-X (Version None)
Quarter: 2010Q2

REPORT INFORMATION
  Report Type: 
  Country: None (occurrence: None)
  Receive Date: 20100428
  Receipt Date: 20100416
  Transmission Date: 20101027
  Serious: Yes (Hospitalization, Other)
  Sender: FDA-Public Use
  Company Number: US-ROCHE-644329

PATIENT
  Sex: Female

DRUGS (4)
  1. BEVACIZUMAB [Suspect]
     Indication: GASTRIC CANCER
     Dosage: UNK
     Route: 065
     Dates: start: 20090430
  2. CAPECITABINE [Suspect]
     Indication: GASTRIC CANCER
     Dosage: UNK
     Route: 065
     Dates: start: 20090430
  3. CISPLATIN [Suspect]
     Indication: GASTRIC CANCER
     Dosage: UNK
     Route: 065
     Dates: start: 20090430
  4. EPIRUBICIN [Suspect]
     Indication: GASTRIC CANCER
     Dosage: UNK
     Route: 065
     Dates: start: 20090430

REACTIONS (5)
  - DEHYDRATION [None]
  - MUCOSAL INFLAMMATION [None]
  - NAUSEA [None]
  - NEUTROPENIA [None]
  - VOMITING [None]
